FAERS Safety Report 6188093-5 (Version None)
Quarter: 2009Q2

REPORT INFORMATION
  Report Type: 
  Country: None (occurrence: None)
  Receive Date: 20090513
  Receipt Date: 20090504
  Transmission Date: 20091009
  Serious: Yes (Other)
  Sender: FDA-Public Use
  Company Number: PHHY2008SE07548

PATIENT
  Sex: Female

DRUGS (8)
  1. ACLASTA [Suspect]
     Indication: OSTEOPOROSIS
     Dosage: 5 MG
     Dates: start: 20080428
  2. ACLASTA [Suspect]
     Dosage: 5 MG
     Dates: start: 20090430
  3. NAPROXEN [Suspect]
     Dosage: UNK
  4. ACETAMINOPHEN [Suspect]
     Dosage: 665 MG 1-2 DAILY
  5. CORTISONE [Concomitant]
  6. PREDNISOLONE [Concomitant]
     Dosage: 1 DF, QD
     Route: 048
  7. KALCIPOS-D [Concomitant]
     Dosage: 1 DF, BID
     Route: 048
  8. IMOVANE [Concomitant]
     Dosage: 5 MG FOR THE NIGHT

REACTIONS (17)
  - ABASIA [None]
  - ABDOMINAL PAIN UPPER [None]
  - BACK PAIN [None]
  - BLEPHAROSPASM [None]
  - CHILLS [None]
  - DIARRHOEA [None]
  - HEADACHE [None]
  - INSOMNIA [None]
  - LIVER FUNCTION TEST ABNORMAL [None]
  - MUSCLE SPASMS [None]
  - NAUSEA [None]
  - PAIN [None]
  - PAIN IN EXTREMITY [None]
  - POLYMYALGIA RHEUMATICA [None]
  - PYREXIA [None]
  - SKIN BURNING SENSATION [None]
  - VISUAL ACUITY REDUCED [None]
